FAERS Safety Report 7367539-0 (Version None)
Quarter: 2011Q1

REPORT INFORMATION
  Report Type: 
  Country: None (occurrence: None)
  Receive Date: 20110322
  Receipt Date: 20110316
  Transmission Date: 20110831
  Serious: Yes (Other)
  Sender: FDA-Public Use
  Company Number: US-AMGEN-USASP2011014628

PATIENT
  Age: 78 Year
  Sex: Female

DRUGS (5)
  1. LISINOPRIL [Concomitant]
  2. MOBIC [Concomitant]
  3. ESTRADIOL [Concomitant]
  4. SYNTHROID [Concomitant]
  5. PROLIA [Suspect]
     Indication: OSTEOPOROSIS POSTMENOPAUSAL
     Dosage: 60 MG, Q6MO
     Route: 058
     Dates: start: 20100901

REACTIONS (2)
  - LIP SWELLING [None]
  - SWELLING FACE [None]
